FAERS Safety Report 17052271 (Version 1)
Quarter: 2019Q4

REPORT INFORMATION
  Report Type: Spontaneous
  Country: US (occurrence: US)
  Receive Date: 20191119
  Receipt Date: 20191119
  Transmission Date: 20200122
  Serious: No
  Sender: FDA-Public Use
  Company Number: None

PATIENT
  Age: 36 Year
  Sex: Female
  Weight: 76.5 kg

DRUGS (12)
  1. HYDROXYZINE 25MG [Concomitant]
  2. CA 600 [Concomitant]
  3. LEVOTHYROXINE 112 MCG [Concomitant]
     Active Substance: LEVOTHYROXINE
  4. ESCITALOPRAM [Suspect]
     Active Substance: ESCITALOPRAM OXALATE
     Indication: OBSESSIVE-COMPULSIVE DISORDER
     Dosage: ?          QUANTITY:1 TABLET(S);?
     Route: 048
  5. OXYCODONE 10 MG [Concomitant]
  6. BUPROPION XL 150MG [Concomitant]
     Active Substance: BUPROPION
  7. RESVERATROL POWDER [Concomitant]
  8. ESCITALOPRAM [Suspect]
     Active Substance: ESCITALOPRAM OXALATE
     Indication: DEPRESSION
     Dosage: ?          QUANTITY:1 TABLET(S);?
     Route: 048
  9. MOVANTIK 25 MG [Concomitant]
  10. TIZANIDINE 1 MG [Concomitant]
  11. BELBUCA 300 MCG [Concomitant]
  12. VIT D 4000 IU [Concomitant]

REACTIONS (2)
  - Product substitution issue [None]
  - Arthralgia [None]

NARRATIVE: CASE EVENT DATE: 20150101
